FAERS Safety Report 8489475-9 (Version None)
Quarter: 2012Q2

REPORT INFORMATION
  Report Type: 
  Country: None (occurrence: None)
  Receive Date: 20120628
  Receipt Date: 20120628
  Transmission Date: 20120825
  Serious: Yes (Hospitalization)
  Sender: FDA-Public Use
  Company Number: None

PATIENT
  Age: 53 Year
  Sex: Male
  Weight: 97.5234 kg

DRUGS (1)
  1. LEVETIRACETAM [Suspect]
     Indication: CONVULSION
     Dosage: 3 TABLETS TWICE DAILY PO
     Route: 048
     Dates: start: 20120307, end: 20120626

REACTIONS (3)
  - SEIZURE CLUSTER [None]
  - POSTICTAL STATE [None]
  - POSTICTAL PSYCHOSIS [None]
